FAERS Safety Report 5954218-7 (Version None)
Quarter: 2008Q4

REPORT INFORMATION
  Report Type: 
  Country: None (occurrence: None)
  Receive Date: 20081113
  Receipt Date: 20081029
  Transmission Date: 20090506
  Serious: Yes (Other)
  Sender: FDA-Public Use
  Company Number: 8039057

PATIENT
  Age: 28 Year
  Sex: Male
  Weight: 90 kg

DRUGS (4)
  1. KEPPRA [Suspect]
     Indication: EPILEPSY
     Dosage: 4000 MG /D PO
     Route: 048
  2. TRILEPTAL [Suspect]
     Indication: EPILEPSY
     Dosage: 2700 MG /D PO
     Route: 048
  3. PHENOBARBITAL TAB [Concomitant]
  4. EXFORGE [Concomitant]

REACTIONS (5)
  - ATAXIA [None]
  - DIPLOPIA [None]
  - OVERDOSE [None]
  - VERTIGO [None]
  - VOMITING [None]
